FAERS Safety Report 4481986-6 (Version None)
Quarter: 2004Q4

REPORT INFORMATION
  Report Type: 
  Country: None (occurrence: None)
  Receive Date: 20041022
  Receipt Date: 20041014
  Transmission Date: 20050328
  Serious: Yes (Death, Other)
  Sender: FDA-Public Use
  Company Number: TW-ABBOTT-04P-153-0277593-00

PATIENT
  Sex: Male

DRUGS (32)
  1. DEPAKENE [Suspect]
     Indication: TREMOR
     Route: 048
     Dates: start: 20040618, end: 20040821
  2. DEPAKENE [Suspect]
     Route: 042
     Dates: start: 20040610, end: 20040617
  3. DEPACON [Suspect]
     Indication: CONVULSION PROPHYLAXIS
     Route: 042
     Dates: start: 20040610, end: 20040617
  4. CEFUROXIME [Concomitant]
     Indication: DRUG USE FOR UNKNOWN INDICATION
     Dates: start: 20040608, end: 20040610
  5. CEFUROXIME [Concomitant]
     Dates: start: 20040616, end: 20040616
  6. ISEPAMICIN [Concomitant]
     Indication: DRUG USE FOR UNKNOWN INDICATION
     Dates: start: 20040608, end: 20040610
  7. ISEPAMICIN [Concomitant]
     Dates: start: 20040616, end: 20040616
  8. KETOPROFEN [Concomitant]
     Indication: DRUG USE FOR UNKNOWN INDICATION
     Dates: start: 20040609, end: 20040610
  9. KETOPROFEN [Concomitant]
     Dates: start: 20040612, end: 20040617
  10. PROPOFOL [Concomitant]
     Indication: DRUG USE FOR UNKNOWN INDICATION
     Dates: start: 20040609, end: 20040610
  11. PROPOFOL [Concomitant]
     Dates: start: 20040616, end: 20040616
  12. GLYCEROL 2.6% [Concomitant]
     Indication: DRUG USE FOR UNKNOWN INDICATION
     Dates: start: 20040609, end: 20040610
  13. RANITIDINE [Concomitant]
     Indication: DRUG USE FOR UNKNOWN INDICATION
     Dates: start: 20040609, end: 20040610
  14. DEXAMETHASONE [Concomitant]
     Indication: DRUG USE FOR UNKNOWN INDICATION
     Dates: start: 20040609, end: 20040610
  15. TRANEXAMIC ACID [Concomitant]
     Indication: DRUG USE FOR UNKNOWN INDICATION
     Dates: start: 20040609, end: 20040610
  16. ESMOLOL [Concomitant]
     Indication: DRUG USE FOR UNKNOWN INDICATION
     Dates: start: 20040609, end: 20040610
  17. ESMOLOL [Concomitant]
     Dates: start: 20040614, end: 20040615
  18. MIDAZOLAM HCL [Concomitant]
     Indication: DRUG USE FOR UNKNOWN INDICATION
     Dates: start: 20040609, end: 20040610
  19. EPHEDRINE SUL CAP [Concomitant]
     Indication: DRUG USE FOR UNKNOWN INDICATION
     Dates: start: 20040609, end: 20040610
  20. HYDROCORTISONE [Concomitant]
     Indication: DRUG USE FOR UNKNOWN INDICATION
     Dates: start: 20040609, end: 20040609
  21. HYDROCORTISONE [Concomitant]
     Dates: start: 20040612, end: 20040613
  22. IPRATROPIUM BROMIDE [Concomitant]
     Indication: DRUG USE FOR UNKNOWN INDICATION
     Dates: start: 20040612, end: 20040613
  23. BEKOTEC [Concomitant]
     Indication: DRUG USE FOR UNKNOWN INDICATION
     Dates: start: 20040612, end: 20040613
  24. FUROSEMIDE [Concomitant]
     Indication: DRUG USE FOR UNKNOWN INDICATION
     Dates: start: 20040612, end: 20040613
  25. HALOPERIDOL [Concomitant]
     Indication: DRUG USE FOR UNKNOWN INDICATION
     Dates: start: 20040612, end: 20040613
  26. CLOBAZAM [Concomitant]
     Indication: DRUG USE FOR UNKNOWN INDICATION
     Dates: start: 20040612, end: 20040613
  27. METHYLPREDNISOLONE [Concomitant]
     Indication: DRUG USE FOR UNKNOWN INDICATION
     Dates: start: 20040614, end: 20040614
  28. DILTIAZEM [Concomitant]
     Indication: DRUG USE FOR UNKNOWN INDICATION
     Dates: start: 20040614, end: 20040615
  29. AMIODARONE [Concomitant]
     Indication: DRUG USE FOR UNKNOWN INDICATION
     Dates: start: 20040615, end: 20040615
  30. LIDOCAINE [Concomitant]
     Indication: DRUG USE FOR UNKNOWN INDICATION
     Dates: start: 20040616, end: 20040616
  31. LABETALOL [Concomitant]
     Indication: DRUG USE FOR UNKNOWN INDICATION
     Dates: start: 20040616, end: 20040616
  32. RISPERIDONE [Concomitant]
     Indication: DRUG USE FOR UNKNOWN INDICATION
     Dates: start: 20040618, end: 20040618

REACTIONS (4)
  - COMA HEPATIC [None]
  - HEPATIC FAILURE [None]
  - HYPERAMMONAEMIA [None]
  - RENAL FAILURE ACUTE [None]
